FAERS Safety Report 6077165-1 (Version None)
Quarter: 2009Q1

REPORT INFORMATION
  Report Type: 
  Country: None (occurrence: None)
  Receive Date: 20090213
  Receipt Date: 20090204
  Transmission Date: 20090719
  Serious: Yes (Other)
  Sender: FDA-Public Use
  Company Number: CA-JNJFOC-20090201609

PATIENT
  Sex: Female
  Weight: 50 kg

DRUGS (7)
  1. REMICADE [Suspect]
     Indication: CROHN'S DISEASE
     Dosage: FIRST TREATMENT
     Route: 042
  2. IMURAN [Concomitant]
     Route: 048
  3. PREDNISONE [Concomitant]
  4. ACIDOPHILUS [Concomitant]
  5. L GLUTAMINE [Concomitant]
  6. VITAMIN B-12 [Concomitant]
     Route: 060
  7. FOLIC ACID [Concomitant]
     Route: 060

REACTIONS (7)
  - ACNE [None]
  - BACK PAIN [None]
  - BLOOD PRESSURE INCREASED [None]
  - CHEST PAIN [None]
  - OEDEMA PERIPHERAL [None]
  - PAIN IN EXTREMITY [None]
  - PRURITUS [None]
